FAERS Safety Report 18498374 (Version 2)
Quarter: 2020Q4

REPORT INFORMATION
  Report Type: Spontaneous
  Country: US (occurrence: US)
  Receive Date: 20201112
  Receipt Date: 20201215
  Transmission Date: 20210114
  Serious: Yes (Life-Threatening, Hospitalization)
  Sender: FDA-Public Use
  Company Number: US-TEVA-2020-US-1846423

PATIENT
  Age: 63 Year
  Sex: Female

DRUGS (1)
  1. MIXED-AMFETAMINE-SALTS [Suspect]
     Active Substance: AMPHETAMINE\DEXTROAMPHETAMINE
     Indication: OVERDOSE
     Route: 065

REACTIONS (7)
  - Cardiac arrest [Recovered/Resolved]
  - Seizure [Recovering/Resolving]
  - Overdose [Recovering/Resolving]
  - Electrocardiogram QT prolonged [Recovered/Resolved]
  - Stress cardiomyopathy [Recovered/Resolved]
  - Torsade de pointes [Recovered/Resolved]
  - Ventricular fibrillation [Recovered/Resolved]
